FAERS Safety Report 11102032 (Version 1)
Quarter: 2015Q2

REPORT INFORMATION
  Report Type: Spontaneous
  Country: JP (occurrence: JP)
  Receive Date: 20150511
  Receipt Date: 20150511
  Transmission Date: 20150821
  Serious: Yes (Other)
  Sender: FDA-Public Use
  Company Number: JP-CIPLA LTD.-2015JP03626

PATIENT

DRUGS (2)
  1. GEMCITABINE [Suspect]
     Active Substance: GEMCITABINE\GEMCITABINE HYDROCHLORIDE
     Indication: PANCREATIC CARCINOMA METASTATIC
     Dosage: 1000 MG/M2, ON DAYS 1, 8 AND 15 OVER 30 TO 60 MIN
     Route: 042
  2. GANITUMAB [Suspect]
     Active Substance: GANITUMAB
     Indication: PANCREATIC CARCINOMA METASTATIC
     Dosage: 20 MG/KG, DAYS 1 AND 15 OF EACH 28 DAY CYCLE, OVER 60 MIN
     Route: 042

REACTIONS (3)
  - Thrombocytopenia [Recovered/Resolved]
  - Leukopenia [Recovered/Resolved]
  - Hyponatraemia [Recovered/Resolved]
